FAERS Safety Report 8804478 (Version 2)
Quarter: 2012Q4

REPORT INFORMATION
  Report Type: 
  Country: US (occurrence: US)
  Receive Date: 20120924
  Receipt Date: 20121022
  Transmission Date: 20130627
  Serious: Yes (Other)
  Sender: FDA-Public Use
  Company Number: US-JNJFOC-20110812248

PATIENT
  Sex: Male

DRUGS (6)
  1. LEVAQUIN [Suspect]
     Indication: BRONCHITIS
     Route: 048
  2. LEVAQUIN [Suspect]
     Indication: DIVERTICULUM
     Route: 048
  3. LEVAQUIN [Suspect]
     Indication: CHRONIC OBSTRUCTIVE PULMONARY DISEASE
     Route: 048
  4. LEVAQUIN [Suspect]
     Indication: BACTERIAL INFECTION
     Route: 048
  5. PREDNISONE [Suspect]
     Indication: CHRONIC OBSTRUCTIVE PULMONARY DISEASE
     Route: 065
  6. DEPO MEDROL [Suspect]
     Indication: CHRONIC OBSTRUCTIVE PULMONARY DISEASE
     Route: 030

REACTIONS (1)
  - Rotator cuff syndrome [Unknown]
